FAERS Safety Report 20123053 (Version 1)
Quarter: 2021Q4

REPORT INFORMATION
  Report Type: Spontaneous
  Country: US (occurrence: US)
  Receive Date: 20211129
  Receipt Date: 20211129
  Transmission Date: 20220303
  Serious: Yes (Death, Hospitalization)
  Sender: FDA-Public Use
  Company Number: US-JNJFOC-20211138884

PATIENT
  Age: 20 Year
  Sex: Male
  Weight: 107 kg

DRUGS (12)
  1. TYLENOL [Suspect]
     Active Substance: ACETAMINOPHEN
     Indication: Hangover
     Dosage: TOTAL DOSE: 12500 MG OF ACETAMINOPHEN ON 24-MAR-2001
     Route: 048
     Dates: end: 20010324
  2. FAT BURNER [BETAINE HYDROCHLORIDE;CALCIUM PHOSPHATE;CHOLINE BITARTRATE [Concomitant]
     Indication: Product used for unknown indication
     Route: 065
     Dates: end: 20010324
  3. METABOLIFE [Concomitant]
     Indication: Product used for unknown indication
     Route: 065
  4. STACKER 2 EPHEDRA FREE [Concomitant]
     Indication: Product used for unknown indication
     Route: 065
     Dates: end: 20010324
  5. PEPTO-BISMOL [Concomitant]
     Active Substance: BISMUTH SUBSALICYLATE
     Indication: Product used for unknown indication
     Route: 065
     Dates: end: 20010325
  6. CREATINE [Concomitant]
     Active Substance: CREATINE
     Indication: Product used for unknown indication
     Route: 065
     Dates: end: 20010324
  7. MELATONIN [Concomitant]
     Active Substance: MELATONIN
     Indication: Product used for unknown indication
     Route: 065
     Dates: end: 20010324
  8. COENZYME Q10 [TOCOPHERYL ACETATE;UBIDECARENONE] [Concomitant]
     Indication: Product used for unknown indication
     Route: 065
     Dates: end: 20010324
  9. VITAMIN E [Concomitant]
     Active Substance: .ALPHA.-TOCOPHEROL
     Indication: Product used for unknown indication
     Route: 065
     Dates: end: 20010324
  10. VITAMIN C [Concomitant]
     Active Substance: ASCORBIC ACID
     Indication: Product used for unknown indication
     Route: 065
     Dates: end: 20010324
  11. ASPIRIN [Concomitant]
     Active Substance: ASPIRIN
     Indication: Product used for unknown indication
     Route: 065
     Dates: end: 20010324
  12. STACKER 3 [CITRUS AURANTIUM FRUIT;COLA NITIDA;EPHEDRA SPP. HERB;POLIGL [Concomitant]
     Indication: Product used for unknown indication
     Route: 065

REACTIONS (8)
  - Acute kidney injury [Fatal]
  - Product use in unapproved indication [Fatal]
  - Brain oedema [Fatal]
  - Multiple organ dysfunction syndrome [Fatal]
  - Accidental overdose [Fatal]
  - Fungal infection [Fatal]
  - Acute hepatic failure [Fatal]
  - Gastrointestinal haemorrhage [Fatal]
